FAERS Safety Report 7906376-2 (Version None)
Quarter: 2011Q4

REPORT INFORMATION
  Report Type: 
  Country: None (occurrence: None)
  Receive Date: 20111110
  Receipt Date: 20111108
  Transmission Date: 20120403
  Serious: No
  Sender: FDA-Public Use
  Company Number: US-B.I. PHARMACEUTICALS,INC./RIDGEFIELD-2011-BP-25834BP

PATIENT
  Sex: Male

DRUGS (6)
  1. NAPROXEN (ALEVE) [Concomitant]
     Indication: BONE PAIN
     Route: 048
  2. MAXIFED [Concomitant]
     Indication: SINUS CONGESTION
     Route: 048
  3. LISINOPRIL [Concomitant]
     Indication: HYPERTENSION
     Dosage: 10 MG
     Route: 048
     Dates: start: 20081101
  4. SPIRIVA [Suspect]
     Indication: CHRONIC OBSTRUCTIVE PULMONARY DISEASE
     Dosage: 18 MCG
     Route: 055
     Dates: start: 20081101
  5. ASPIRIN [Concomitant]
     Indication: ROUTINE HEALTH MAINTENANCE
     Dosage: 81 MG
     Route: 048
  6. TRAMADOL HCL [Concomitant]
     Indication: BONE PAIN
     Route: 048

REACTIONS (2)
  - DYSPHONIA [None]
  - PULMONARY CONGESTION [None]
